FAERS Safety Report 7413716-X (Version None)
Quarter: 2011Q2

REPORT INFORMATION
  Report Type: 
  Country: None (occurrence: None)
  Receive Date: 20110413
  Receipt Date: 20110411
  Transmission Date: 20111010
  Serious: Yes (Hospitalization, Other)
  Sender: FDA-Public Use
  Company Number: FR-PFIZER INC-2011072456

PATIENT
  Age: 88 Year
  Sex: Male

DRUGS (6)
  1. STILNOX [Concomitant]
     Route: 048
  2. LYRICA [Suspect]
     Dosage: UNK
     Route: 048
     Dates: end: 20101001
  3. TAHOR [Concomitant]
     Route: 048
  4. FUROSEMIDE [Concomitant]
     Route: 048
  5. KARDEGIC [Concomitant]
     Route: 048
  6. LANTUS [Concomitant]
     Route: 048

REACTIONS (8)
  - LOSS OF CONSCIOUSNESS [None]
  - BLOOD UREA INCREASED [None]
  - HYPERKALAEMIA [None]
  - HYPOTENSION [None]
  - BLOOD GLUCOSE INCREASED [None]
  - BLOOD CREATININE INCREASED [None]
  - SINUS BRADYCARDIA [None]
  - MALAISE [None]
